FAERS Safety Report 13994192 (Version 1)
Quarter: 2017Q3

REPORT INFORMATION
  Report Type: Spontaneous
  Country: US (occurrence: US)
  Receive Date: 20170920
  Receipt Date: 20170920
  Transmission Date: 20171128
  Serious: Yes (Disabling)
  Sender: FDA-Public Use
  Company Number: None

PATIENT
  Age: 76 Year
  Sex: Male
  Weight: 78.75 kg

DRUGS (6)
  1. SIMVASTATIN. [Concomitant]
     Active Substance: SIMVASTATIN
  2. MAGNESIUM [Concomitant]
     Active Substance: MAGNESIUM
  3. MULTI VITAMIN FOR MEN (CENTRUM) [Concomitant]
  4. CIPRO [Suspect]
     Active Substance: CIPROFLOXACIN HYDROCHLORIDE
     Indication: INFECTION
     Dosage: ?          QUANTITY:1 TABLET(S);?TWICE A DAY ORAL
     Route: 048
     Dates: start: 20170620, end: 20170710
  5. PROCARDIA XL [Concomitant]
     Active Substance: NIFEDIPINE
  6. LOPRESSOR + LISINOPRIL [Concomitant]

REACTIONS (4)
  - Myalgia [None]
  - Arthralgia [None]
  - Therapy cessation [None]
  - Pain [None]
